FAERS Safety Report 4472908-2 (Version None)
Quarter: 2004Q4

REPORT INFORMATION
  Report Type: 
  Country: None (occurrence: None)
  Receive Date: 20041013
  Receipt Date: 20041005
  Transmission Date: 20050328
  Serious: Yes (Other)
  Sender: FDA-Public Use
  Company Number: US-JNJFOC-20041002681

PATIENT
  Age: 65 Year
  Sex: Male

DRUGS (2)
  1. RISPERDAL CONSTA [Suspect]
     Indication: SCHIZOPHRENIA
     Dosage: (25MG AND 50MG INJECTIONS)
     Route: 030
     Dates: start: 20040501, end: 20040824
  2. RISPERDAL [Suspect]
     Indication: SCHIZOPHRENIA

REACTIONS (2)
  - BLOOD PROLACTIN INCREASED [None]
  - BREAST CANCER MALE [None]
